FAERS Safety Report 16608799 (Version 1)
Quarter: 2019Q3

REPORT INFORMATION
  Report Type: Spontaneous
  Country: DE (occurrence: DE)
  Receive Date: 20190722
  Receipt Date: 20190722
  Transmission Date: 20191004
  Serious: Yes (Death, Hospitalization, Other)
  Sender: FDA-Public Use
  Company Number: DE-PFIZER INC-2019306161

PATIENT
  Age: 54 Year
  Sex: Male

DRUGS (17)
  1. ATORVASTATIN [Concomitant]
     Active Substance: ATORVASTATIN
     Dosage: 20 MG, 1X/DAY, 0-1-0-0
  2. METFORMIN/SITAGLIPTIN [Concomitant]
     Dosage: UNK (DOSE: 50)
  3. OMEPRAZOL [Concomitant]
     Active Substance: OMEPRAZOLE
     Dosage: 20 MG, 1X/DAY, 1-0-0-0
  4. METHOTREXATE SODIUM. [Suspect]
     Active Substance: METHOTREXATE SODIUM
     Dosage: 20 MG, WEEKLY, FRIDAYS
     Route: 058
  5. PREDNISOLONE. [Suspect]
     Active Substance: PREDNISOLONE
     Dosage: 2 MG, 1X/DAY, 1-0-0-0
  6. ASPIRIN. [Concomitant]
     Active Substance: ASPIRIN
     Dosage: 100 MG, 1X/DAY, 1-0-0-0
  7. MORPHINE [Concomitant]
     Active Substance: MORPHINE
     Dosage: 30 MG, 3X/DAY, 1-1-0-1
  8. NATRIUMPICOSULFAT [Concomitant]
     Dosage: 16 GTT, 1X/DAY, 0-0-16
  9. ESKETAMINE [Concomitant]
     Active Substance: ESKETAMINE
     Dosage: 10 MG, AS NEEDED
     Route: 058
  10. MORPHINE [Concomitant]
     Active Substance: MORPHINE
     Dosage: 5 MG, AS NEEDED
     Route: 058
  11. AMLODIPINE/OLMESARTAN [Concomitant]
     Dosage: UNK (DOSE : 40)
  12. FUROSEMID [Concomitant]
     Active Substance: FUROSEMIDE
     Dosage: 40 MG, 1X/DAY, 1-0-0-0
  13. METOPROLOL. [Concomitant]
     Active Substance: METOPROLOL
     Dosage: 47.5 MG, 2X/DAY, 1-0-1-0
  14. FOLIC ACID. [Concomitant]
     Active Substance: FOLIC ACID
     Dosage: 5 MG, WEEKLY
  15. COLECALCIFEROL [Concomitant]
     Active Substance: CHOLECALCIFEROL
     Dosage: 20000 IU, WEEKLY
  16. ETORICOXIB. [Concomitant]
     Active Substance: ETORICOXIB
     Dosage: 90 MG, 1X/DAY, 1-0-0-0
  17. GLIMEPIRIDE. [Concomitant]
     Active Substance: GLIMEPIRIDE
     Dosage: 3 MG, 1X/DAY, 1-0-0-0

REACTIONS (4)
  - Death [Fatal]
  - Spinal pain [Unknown]
  - Gamma-glutamyltransferase increased [Unknown]
  - Aspartate aminotransferase increased [Unknown]

NARRATIVE: CASE EVENT DATE: 20171119
